FAERS Safety Report 13162758 (Version 1)
Quarter: 2017Q1

REPORT INFORMATION
  Report Type: Spontaneous
  Country: US (occurrence: US)
  Receive Date: 20170128
  Receipt Date: 20170128
  Transmission Date: 20170428
  Serious: Yes (Hospitalization)
  Sender: FDA-Public Use
  Company Number: None

PATIENT
  Age: 82 Year
  Sex: Male
  Weight: 72.2 kg

DRUGS (12)
  1. BENAZEPRIL [Suspect]
     Active Substance: BENAZEPRIL HYDROCHLORIDE
     Indication: CARDIAC FAILURE CONGESTIVE
     Route: 048
     Dates: start: 20160310, end: 20170128
  2. CALCIUM [Concomitant]
     Active Substance: CALCIUM
  3. NITROGLYCERIN (NITROQUICK) [Concomitant]
  4. ASPIRIN (BABY ASPIRIN) [Concomitant]
  5. CALCIUM CARBONATE (TUMS EQUIVALENT) [Concomitant]
  6. CHOLECALCIFEROL [Concomitant]
     Active Substance: CHOLECALCIFEROL
  7. BENAZEPRIL (LOTENSIN) [Concomitant]
  8. VITAMIN D3 [Concomitant]
     Active Substance: CHOLECALCIFEROL
  9. ROSUVASTATIN (CRESTOR) [Concomitant]
  10. COUMADIN [Concomitant]
     Active Substance: WARFARIN SODIUM
  11. BENAZEPRIL [Suspect]
     Active Substance: BENAZEPRIL HYDROCHLORIDE
     Indication: HYPERTENSION
     Route: 048
     Dates: start: 20160310, end: 20170128
  12. CARVEDILOL (COREG) [Concomitant]

REACTIONS (2)
  - Hallucination, visual [None]
  - Confusional state [None]

NARRATIVE: CASE EVENT DATE: 20170128
